FAERS Safety Report 9467429 (Version 1)
Quarter: 2013Q3

REPORT INFORMATION
  Report Type: Spontaneous
  Country: US (occurrence: None)
  Receive Date: 20130819
  Receipt Date: 20130819
  Transmission Date: 20140515
  Serious: No
  Sender: FDA-Public Use
  Company Number: None

PATIENT
  Sex: 0

DRUGS (1)
  1. POMALIDOMIDE [Suspect]

REACTIONS (12)
  - Progressive multifocal leukoencephalopathy [None]
  - Personality change [None]
  - Abnormal behaviour [None]
  - Confusional state [None]
  - Headache [None]
  - Affect lability [None]
  - Disorientation [None]
  - Toxoplasmosis [None]
  - Opportunistic infection [None]
  - Central nervous system lymphoma [None]
  - Nuclear magnetic resonance imaging brain abnormal [None]
  - Amnesia [None]
